FAERS Safety Report 10343975 (Version 3)
Quarter: 2014Q3

REPORT INFORMATION
  Report Type: Spontaneous
  Country: MX (occurrence: MX)
  Receive Date: 20140728
  Receipt Date: 20140731
  Transmission Date: 20150326
  Serious: Yes (Life-Threatening)
  Sender: FDA-Public Use
  Company Number: MX-ROCHE-1438200

PATIENT
  Age: 42 Year
  Sex: Female
  Weight: 76 kg

DRUGS (1)
  1. XELODA [Suspect]
     Active Substance: CAPECITABINE
     Indication: BREAST CANCER
     Route: 048
     Dates: start: 20140629, end: 201407

REACTIONS (1)
  - Myocardial ischaemia [Unknown]

NARRATIVE: CASE EVENT DATE: 20140704
